FAERS Safety Report 10590296 (Version 1)
Quarter: 2014Q4

REPORT INFORMATION
  Report Type: Spontaneous
  Country: US (occurrence: None)
  Receive Date: 20141117
  Receipt Date: 20141117
  Transmission Date: 20150529
  Serious: Yes (Other)
  Sender: FDA-Public Use
  Company Number: None

PATIENT
  Age: 51 Year
  Sex: Female
  Weight: 55.34 kg

DRUGS (2)
  1. XEOMIN [Suspect]
     Active Substance: INCOBOTULINUMTOXINA
     Indication: BLEPHAROSPASM
     Dosage: 100 UNITS, 5 INJECTIONS; 1 SET OF INJECTIONS; INTO THE MUSCLE
     Route: 030
     Dates: start: 20141020
  2. XEOMIN [Suspect]
     Active Substance: INCOBOTULINUMTOXINA
     Indication: MIGRAINE
     Dosage: 100 UNITS, 5 INJECTIONS; 1 SET OF INJECTIONS; INTO THE MUSCLE
     Route: 030
     Dates: start: 20141020

REACTIONS (7)
  - Bedridden [None]
  - Malaise [None]
  - Impaired work ability [None]
  - Migraine [None]
  - Condition aggravated [None]
  - Drug ineffective [None]
  - Influenza like illness [None]

NARRATIVE: CASE EVENT DATE: 20141020
